FAERS Safety Report 25106000 (Version 1)
Quarter: 2025Q1

REPORT INFORMATION
  Report Type: Spontaneous
  Country: CN (occurrence: CN)
  Receive Date: 20250321
  Receipt Date: 20250321
  Transmission Date: 20250408
  Serious: Yes (Hospitalization)
  Sender: EISAI
  Company Number: CN-Eisai-EC-2025-186009

PATIENT
  Age: 61 Year
  Sex: Female
  Weight: 37.5 kg

DRUGS (3)
  1. ERIBULIN [Suspect]
     Active Substance: ERIBULIN
     Indication: Invasive ductal breast carcinoma
     Dates: start: 20250202
  2. ERIBULIN [Suspect]
     Active Substance: ERIBULIN
     Dates: start: 20250223
  3. TRASTUZUMAB DERUXTECAN [Concomitant]
     Active Substance: TRASTUZUMAB DERUXTECAN
     Indication: Invasive ductal breast carcinoma
     Dates: start: 20250108

REACTIONS (2)
  - Leukopenia [Recovering/Resolving]
  - Neutropenia [Recovering/Resolving]

NARRATIVE: CASE EVENT DATE: 20250201
